FAERS Safety Report 13839037 (Version 1)
Quarter: 2017Q3

REPORT INFORMATION
  Report Type: Spontaneous
  Country: US (occurrence: US)
  Receive Date: 20170805
  Receipt Date: 20170805
  Transmission Date: 20171127
  Serious: Yes (Other)
  Sender: FDA-Public Use
  Company Number: None

PATIENT
  Sex: Female
  Weight: 58.5 kg

DRUGS (27)
  1. HYDROCODONE-ACETAMINOPHEN [Concomitant]
     Active Substance: ACETAMINOPHEN\HYDROCODONE
  2. VENTOLIN [Concomitant]
     Active Substance: ALBUTEROL SULFATE
  3. BACLOFIN [Concomitant]
  4. CHOLESTYRAMINE. [Concomitant]
     Active Substance: CHOLESTYRAMINE
  5. SYMBICORT [Concomitant]
     Active Substance: BUDESONIDE\FORMOTEROL FUMARATE DIHYDRATE
  6. KERASAL [Suspect]
     Active Substance: MENTHOL
     Indication: NAIL DISORDER
     Dosage: QUANTITY:1 PLACE ON TOE NAIL;OTHER ROUTE:DRIP ONTO TOE NAIL?
     Dates: start: 20170626, end: 20170804
  7. NEFAZODONE [Concomitant]
     Active Substance: NEFAZODONE
  8. CLINDAMYCIN. [Concomitant]
     Active Substance: CLINDAMYCIN
  9. FOLIC ACID. [Concomitant]
     Active Substance: FOLIC ACID
  10. SUCRAFATE [Concomitant]
     Active Substance: SUCRALFATE
  11. FAMOTIDINE. [Concomitant]
     Active Substance: FAMOTIDINE
  12. LISINOPRIL. [Concomitant]
     Active Substance: LISINOPRIL
  13. MELATONIN [Concomitant]
     Active Substance: MELATONIN
  14. IRON [Concomitant]
     Active Substance: IRON
  15. VITAMIN D3 [Concomitant]
     Active Substance: CHOLECALCIFEROL
  16. MAGNESIUM [Concomitant]
     Active Substance: MAGNESIUM
  17. PROPRANOLOL [Concomitant]
     Active Substance: PROPRANOLOL HYDROCHLORIDE
  18. IMODIUM [Concomitant]
     Active Substance: LOPERAMIDE HYDROCHLORIDE
  19. CALCIUM [Concomitant]
     Active Substance: CALCIUM
  20. CHLORZOXAZONE. [Concomitant]
     Active Substance: CHLORZOXAZONE
  21. BTSOLIC [Concomitant]
  22. DESONIDE CLOBESTEROL PROPIONATE [Concomitant]
  23. AMLODIPINE [Concomitant]
     Active Substance: AMLODIPINE BESYLATE
  24. DIAZIPINE [Concomitant]
  25. ATOVSATATIN [Concomitant]
  26. OMEPRAZOLE. [Concomitant]
     Active Substance: OMEPRAZOLE
  27. ASPIRIN. [Concomitant]
     Active Substance: ASPIRIN

REACTIONS (1)
  - Onychomadesis [None]

NARRATIVE: CASE EVENT DATE: 20170804
